FAERS Safety Report 10981476 (Version 1)
Quarter: 2015Q1

REPORT INFORMATION
  Report Type: Spontaneous
  Country: US (occurrence: None)
  Receive Date: 20150227
  Receipt Date: 20150227
  Transmission Date: 20150721
  Serious: Yes (Hospitalization)
  Sender: FDA-Public Use
  Company Number: LMI-2014-00458

PATIENT
  Age: 48 Year
  Sex: Male
  Weight: 92 kg

DRUGS (5)
  1. ACETYLSALICYLIC ACID [Concomitant]
     Active Substance: ASPIRIN
  2. DEFINITY [Suspect]
     Active Substance: PERFLUTREN
     Indication: STRESS ECHOCARDIOGRAM
     Dosage: UNSPECIFIED 1ST DOSE (ONE VIAL DEFINITY DILUTED IN 8 ML NORMAL SALINE); TOTAL DOSE 7ML (1 IN 1 D)
     Dates: start: 20141015, end: 20141015
  3. METOPROLOL [Concomitant]
     Active Substance: METOPROLOL
  4. DOBUTAMINE [Suspect]
     Active Substance: DOBUTAMINE\DOBUTAMINE HYDROCHLORIDE
     Indication: STRESS ECHOCARDIOGRAM
     Dosage: 20 MCG/KG (55 ML, 1 IN 1 MIN)
     Dates: start: 20141015, end: 20141015
  5. DEFINITY [Suspect]
     Active Substance: PERFLUTREN
     Indication: STRESS ECHOCARDIOGRAM
     Dosage: UNSPECIFIED 1ST DOSE (ONE VIAL DEFINITY DILUTED IN 8ML NORMAL SALINE); TOTAL DOSE 7ML (1 IN 1 D)
     Dates: start: 20141015, end: 20141015

REACTIONS (5)
  - Hypersensitivity [None]
  - Rash erythematous [None]
  - Eye pruritus [None]
  - Rash generalised [None]
  - Urticaria [None]

NARRATIVE: CASE EVENT DATE: 20141015
